FAERS Safety Report 4666046-3 (Version None)
Quarter: 2005Q2

REPORT INFORMATION
  Report Type: 
  Country: None (occurrence: None)
  Receive Date: 20050519
  Receipt Date: 20050210
  Transmission Date: 20051028
  Serious: Yes (Death, Hospitalization)
  Sender: FDA-Public Use
  Company Number: BR-ROCHE-395248

PATIENT
  Age: 70 Year
  Sex: Female

DRUGS (3)
  1. XELODA [Suspect]
     Indication: COLORECTAL CANCER
     Dosage: DAILY
     Route: 048
     Dates: start: 20050105, end: 20050119
  2. FLUOROURACIL [Suspect]
     Indication: COLON CANCER
     Route: 042
  3. OXALIPLATIN [Concomitant]
     Indication: COLORECTAL CANCER
     Dates: start: 20050115

REACTIONS (27)
  - ABDOMINAL PAIN [None]
  - BLOOD PRESSURE DECREASED [None]
  - BLOOD PRESSURE INCREASED [None]
  - CARDIOTOXICITY [None]
  - CEREBROVASCULAR ACCIDENT [None]
  - COLORECTAL CANCER [None]
  - DEHYDRATION [None]
  - DIALYSIS [None]
  - DIARRHOEA [None]
  - DRUG TOXICITY [None]
  - GASTROINTESTINAL INFECTION [None]
  - HAEMORRHAGE [None]
  - HEART RATE INCREASED [None]
  - INFECTION [None]
  - MALIGNANT NEOPLASM PROGRESSION [None]
  - MUCOSAL INFLAMMATION [None]
  - MULTI-ORGAN FAILURE [None]
  - NAUSEA [None]
  - NEUTROPENIA [None]
  - ORAL INFECTION [None]
  - PAIN [None]
  - PLATELET COUNT DECREASED [None]
  - PNEUMONIA [None]
  - RENAL FAILURE [None]
  - SEPSIS [None]
  - VOMITING [None]
  - WHITE BLOOD CELL COUNT DECREASED [None]
